FAERS Safety Report 9774585 (Version 1)
Quarter: 2013Q4

REPORT INFORMATION
  Report Type: Spontaneous
  Country: US (occurrence: US)
  Receive Date: 20131220
  Receipt Date: 20131220
  Transmission Date: 20140711
  Serious: No
  Sender: FDA-Public Use
  Company Number: US-B.I. PHARMACEUTICALS,INC./RIDGEFIELD-2013-BI-40328BP

PATIENT
  Sex: Male
  Weight: 90.72 kg

DRUGS (3)
  1. FLOMAX CAPSULES [Suspect]
     Indication: PROSTATOMEGALY
  2. CHOLESTEROL MEDICATION [Concomitant]
  3. BLOOD PRESSURE MEDICATION [Concomitant]

REACTIONS (2)
  - Semen volume abnormal [Recovered/Resolved]
  - Drug ineffective [Recovered/Resolved]
